FAERS Safety Report 9394222 (Version 1)
Quarter: 2013Q3

REPORT INFORMATION
  Report Type: Spontaneous
  Country: US (occurrence: US)
  Receive Date: 20130711
  Receipt Date: 20130711
  Transmission Date: 20140515
  Serious: Yes (Other)
  Sender: FDA-Public Use
  Company Number: US-AMGEN-USASP2013046505

PATIENT
  Age: 72 Year
  Sex: Male

DRUGS (14)
  1. EPOGEN [Suspect]
     Indication: NEPHROGENIC ANAEMIA
     Dosage: UNK
     Route: 065
  2. SENSIPAR [Concomitant]
     Indication: HYPERPARATHYROIDISM SECONDARY
     Dosage: UNK
  3. ALLOPURINOL [Concomitant]
     Dosage: UNK
  4. DILTIAZEM [Concomitant]
     Dosage: UNK
  5. FLEXERIL                           /00428402/ [Concomitant]
     Dosage: UNK
  6. LIPITOR [Concomitant]
     Dosage: UNK
  7. LOPRESSOR [Concomitant]
     Dosage: UNK
  8. LORTAB                             /00607101/ [Concomitant]
     Dosage: UNK
  9. NEPHRON [Concomitant]
     Dosage: UNK
  10. RENVELA [Concomitant]
     Dosage: UNK
  11. VIAGRA [Concomitant]
     Dosage: UNK
  12. COMBIGAN [Concomitant]
     Dosage: UNK
  13. PREDNISONE [Concomitant]
     Dosage: UNK
  14. TOBRAMYCIN [Concomitant]
     Dosage: UNK

REACTIONS (4)
  - Visual acuity reduced [Unknown]
  - Scleral disorder [Unknown]
  - Eye disorder [Unknown]
  - Blepharitis [Unknown]
